FAERS Safety Report 14403003 (Version 3)
Quarter: 2018Q1

REPORT INFORMATION
  Report Type: Spontaneous
  Country: IT (occurrence: IT)
  Receive Date: 20180117
  Receipt Date: 20180309
  Transmission Date: 20180509
  Serious: Yes (Life-Threatening, Hospitalization)
  Sender: FDA-Public Use
  Company Number: IT-PFIZER INC-2018019721

PATIENT
  Age: 58 Year
  Sex: Female

DRUGS (4)
  1. ZITROMAX [Concomitant]
     Active Substance: AZITHROMYCIN
     Dosage: 500 MG, SINGLE
     Dates: start: 20170807, end: 20170807
  2. ROCEFIN [Suspect]
     Active Substance: CEFTRIAXONE SODIUM
     Indication: BRONCHITIS
     Dosage: 1 G, 1X/DAY
     Route: 030
     Dates: start: 20171208, end: 20171208
  3. NORVASC [Suspect]
     Active Substance: AMLODIPINE BESYLATE
     Indication: HYPERTENSION
     Dosage: 10 MG, 1X/DAY
     Route: 048
     Dates: start: 2012, end: 20171208
  4. NEO-LOTAN [Suspect]
     Active Substance: LOSARTAN POTASSIUM
     Indication: HYPERTENSION
     Dosage: 50 MG, 1X/DAY
     Route: 048
     Dates: start: 2014, end: 20171208

REACTIONS (6)
  - Anaphylactic shock [Not Recovered/Not Resolved]
  - Coma [Not Recovered/Not Resolved]
  - Malaise [Not Recovered/Not Resolved]
  - Suffocation feeling [Not Recovered/Not Resolved]
  - Cardiac arrest [Not Recovered/Not Resolved]
  - Loss of consciousness [Not Recovered/Not Resolved]

NARRATIVE: CASE EVENT DATE: 20171208
